FAERS Safety Report 5136815-4 (Version None)
Quarter: 2006Q4

REPORT INFORMATION
  Report Type: 
  Country: None (occurrence: None)
  Receive Date: 20061018
  Receipt Date: 20061005
  Transmission Date: 20070319
  Serious: Yes (Other)
  Sender: FDA-Public Use
  Company Number: THYM-11087

PATIENT
  Sex: Female

DRUGS (4)
  1. THYMOGLOBULIN [Suspect]
     Indication: LIVER TRANSPLANT
     Dosage: 1.5 MG/KG QOD IV
     Route: 042
     Dates: start: 20051122, end: 20051126
  2. ROVALCYTE [Concomitant]
  3. TACROLIMUS [Concomitant]
  4. METHYLPREDNISOLONE 4MG TAB [Concomitant]

REACTIONS (1)
  - CONVULSION [None]
